FAERS Safety Report 15228365 (Version 1)
Quarter: 2018Q3

REPORT INFORMATION
  Report Type: Spontaneous
  Country: BR (occurrence: BR)
  Receive Date: 20180801
  Receipt Date: 20180801
  Transmission Date: 20181010
  Serious: Yes (Disabling, Other)
  Sender: FDA-Public Use
  Company Number: BR-SA-2018SA203058

PATIENT
  Sex: Female

DRUGS (1)
  1. STILNOX CR [Suspect]
     Active Substance: ZOLPIDEM TARTRATE
     Dosage: UNK, UNK
     Route: 065

REACTIONS (5)
  - Cerebrovascular accident [Unknown]
  - Spinal cord disorder [Unknown]
  - Drug dependence [Unknown]
  - Product use issue [Unknown]
  - Bedridden [Unknown]
